FAERS Safety Report 4525191-3 (Version None)
Quarter: 2004Q4

REPORT INFORMATION
  Report Type: 
  Country: None (occurrence: None)
  Receive Date: 20041116
  Receipt Date: 20040805
  Transmission Date: 20050328
  Serious: No
  Sender: FDA-Public Use
  Company Number: S04-USA-04920-01

PATIENT
  Age: 74 Year
  Sex: Female

DRUGS (5)
  1. NAMENDA [Suspect]
     Indication: PARKINSON'S DISEASE
     Dosage: 10 MG QD PO
     Route: 048
     Dates: start: 20040730
  2. NAMENDA [Suspect]
     Indication: PARKINSON'S DISEASE
     Dosage: 5 MG QD PO
     Route: 048
     Dates: start: 20040723, end: 20040729
  3. ACCUPRIL [Concomitant]
  4. TRIAMTERENE [Concomitant]
  5. SINEMET [Concomitant]

REACTIONS (1)
  - OEDEMA PERIPHERAL [None]
